FAERS Safety Report 5299071-2 (Version None)
Quarter: 2007Q2

REPORT INFORMATION
  Report Type: 
  Country: None (occurrence: None)
  Receive Date: 20070417
  Receipt Date: 20070410
  Transmission Date: 20071010
  Serious: Yes (Death, Hospitalization, Other)
  Sender: FDA-Public Use
  Company Number: US-GLAXOSMITHKLINE-A0643844A

PATIENT
  Age: 51 Year
  Sex: Male
  Weight: 93 kg

DRUGS (7)
  1. FLOLAN [Suspect]
     Dosage: 33NGKM UNKNOWN
     Route: 042
     Dates: start: 19991101, end: 20070201
  2. VIAGRA [Concomitant]
     Dosage: 50MG PER DAY
     Route: 048
  3. TRACLEER [Concomitant]
     Dosage: 125MG THREE TIMES PER DAY
     Route: 048
  4. DILTIAZEM [Concomitant]
     Dosage: 120MG PER DAY
     Route: 048
  5. DESYREL [Concomitant]
     Dosage: 25MG AT NIGHT
     Route: 048
  6. COUMADIN [Concomitant]
     Dosage: 5MG PER DAY
     Route: 048
  7. OXYGEN [Concomitant]

REACTIONS (6)
  - CARDIO-RESPIRATORY ARREST [None]
  - CATHETER RELATED COMPLICATION [None]
  - CATHETER RELATED INFECTION [None]
  - MULTIPLE SCLEROSIS [None]
  - PHARMACEUTICAL PRODUCT COMPLAINT [None]
  - SEPSIS [None]
